FAERS Safety Report 8505816-8 (Version None)
Quarter: 2012Q3

REPORT INFORMATION
  Report Type: 
  Country: None (occurrence: None)
  Receive Date: 20120712
  Receipt Date: 20120706
  Transmission Date: 20120928
  Serious: Yes (Hospitalization, Other)
  Sender: FDA-Public Use
  Company Number: US-BAYER-2012-019497

PATIENT
  Age: 27 Year
  Sex: Female
  Weight: 89.796 kg

DRUGS (7)
  1. FLUCONAZOLE [Concomitant]
     Dosage: 150 MG, UNK
     Dates: start: 20110708
  2. CYCLOBENZAPRINE [Concomitant]
     Dosage: 5 MG, TID
     Route: 048
     Dates: start: 20111005
  3. YAZ [Suspect]
     Dosage: UNK
     Dates: start: 20070101, end: 20081001
  4. FLUCONAZOLE [Concomitant]
     Dosage: 150 MG, UNK
     Dates: start: 20110927
  5. KETOROLAC TROMETHAMINE [Concomitant]
     Dosage: 10 MG,TABLET
     Dates: start: 20111005
  6. YAZ [Suspect]
     Dosage: UNK
     Dates: start: 20100401, end: 20110501
  7. NAPROXEN [Concomitant]
     Dosage: 500 MG,TABLET
     Dates: start: 20110928

REACTIONS (7)
  - PALPITATIONS [None]
  - PULMONARY EMBOLISM [None]
  - NEURALGIA [None]
  - PAIN [None]
  - DYSPNOEA [None]
  - PNEUMONITIS [None]
  - CHEST PAIN [None]
